FAERS Safety Report 23534300 (Version 1)
Quarter: 2024Q1

REPORT INFORMATION
  Report Type: Spontaneous
  Country: US (occurrence: US)
  Receive Date: 20240217
  Receipt Date: 20240217
  Transmission Date: 20240410
  Serious: No
  Sender: FDA-Public Use
  Company Number: US-ABBVIE-5640507

PATIENT
  Sex: Female

DRUGS (1)
  1. LATISSE [Suspect]
     Active Substance: BIMATOPROST
     Indication: Product used for unknown indication
     Dosage: 0.03% 5 ML, FORM STRENGTH: 0.3MG/ML SOLUTION
     Route: 047

REACTIONS (2)
  - Adverse drug reaction [Unknown]
  - Incorrect dose administered [Unknown]
